FAERS Safety Report 5889230-X (Version None)
Quarter: 2008Q3

REPORT INFORMATION
  Report Type: 
  Country: None (occurrence: None)
  Receive Date: 20080919
  Receipt Date: 20080909
  Transmission Date: 20090109
  Serious: Yes (Hospitalization)
  Sender: FDA-Public Use
  Company Number: US-ROCHE-585453

PATIENT
  Age: 75 Year
  Sex: Male

DRUGS (2)
  1. BUMEX [Suspect]
     Indication: DRUG USE FOR UNKNOWN INDICATION
     Route: 065
  2. NATRECOR [Suspect]
     Indication: CARDIAC FAILURE
     Dosage: FORM: INFUSION
     Route: 042
     Dates: end: 20080828

REACTIONS (2)
  - HYPERSENSITIVITY [None]
  - VASCULITIS [None]
